FAERS Safety Report 6963489-X (Version None)
Quarter: 2010Q3

REPORT INFORMATION
  Report Type: 
  Country: None (occurrence: None)
  Receive Date: 20100902
  Receipt Date: 20100723
  Transmission Date: 20110219
  Serious: Yes (Death, Hospitalization, Other)
  Sender: FDA-Public Use
  Company Number: US-BAXTER-2008BH000756

PATIENT
  Age: 70 Year
  Sex: Male
  Weight: 74 kg

DRUGS (35)
  1. HEPARIN SODIUM INJECTION [Suspect]
     Indication: PROPHYLAXIS
     Route: 033
     Dates: start: 20071101, end: 20080101
  2. HEPARIN SODIUM INJECTION [Suspect]
     Indication: PERITONEAL DIALYSIS
     Route: 033
     Dates: start: 20071101, end: 20080101
  3. HEPARIN SODIUM INJECTION [Suspect]
     Route: 033
     Dates: start: 20080101, end: 20080201
  4. HEPARIN SODIUM INJECTION [Suspect]
     Route: 033
     Dates: start: 20080101, end: 20080201
  5. HEPARIN SODIUM INJECTION [Suspect]
     Route: 033
     Dates: start: 20050901
  6. HEPARIN SODIUM INJECTION [Suspect]
     Route: 033
     Dates: start: 20050901
  7. HEPARIN SODIUM INJECTION [Suspect]
     Route: 033
     Dates: start: 20080201, end: 20080801
  8. HEPARIN SODIUM INJECTION [Suspect]
     Route: 033
     Dates: start: 20080201, end: 20080801
  9. HEPARIN SODIUM INJECTION [Suspect]
     Route: 033
     Dates: start: 20080823, end: 20080823
  10. HEPARIN SODIUM INJECTION [Suspect]
     Route: 033
     Dates: start: 20080823, end: 20080823
  11. HEPARIN SODIUM INJECTION [Suspect]
     Route: 033
     Dates: start: 20080824, end: 20080825
  12. HEPARIN SODIUM INJECTION [Suspect]
     Route: 033
     Dates: start: 20080824, end: 20080825
  13. HEPARIN SODIUM INJECTION [Suspect]
     Route: 033
     Dates: start: 20080826, end: 20080828
  14. HEPARIN SODIUM INJECTION [Suspect]
     Route: 033
     Dates: start: 20080826, end: 20080828
  15. ALTACE [Concomitant]
     Indication: PRODUCT USED FOR UNKNOWN INDICATION
     Route: 065
  16. ASPIRIN [Concomitant]
     Indication: PRODUCT USED FOR UNKNOWN INDICATION
     Route: 065
  17. CALCITRIOL [Concomitant]
     Indication: PRODUCT USED FOR UNKNOWN INDICATION
     Route: 065
  18. COREG [Concomitant]
     Indication: PRODUCT USED FOR UNKNOWN INDICATION
     Route: 065
  19. COZAAR [Concomitant]
     Indication: PRODUCT USED FOR UNKNOWN INDICATION
     Route: 065
  20. EPOGEN [Concomitant]
     Indication: PRODUCT USED FOR UNKNOWN INDICATION
     Route: 065
  21. FOLTX [Concomitant]
     Indication: PRODUCT USED FOR UNKNOWN INDICATION
     Route: 065
  22. GLIPIZIDE [Concomitant]
     Indication: PRODUCT USED FOR UNKNOWN INDICATION
     Route: 065
  23. HYDRALAZINE [Concomitant]
     Indication: PRODUCT USED FOR UNKNOWN INDICATION
     Route: 065
  24. LANTUS [Concomitant]
     Indication: PRODUCT USED FOR UNKNOWN INDICATION
     Route: 065
  25. LASIX [Concomitant]
     Indication: PRODUCT USED FOR UNKNOWN INDICATION
     Route: 065
  26. NIFEREX [Concomitant]
     Indication: PRODUCT USED FOR UNKNOWN INDICATION
     Route: 065
  27. NORVASC [Concomitant]
     Indication: PRODUCT USED FOR UNKNOWN INDICATION
     Route: 065
  28. NOVOLIN 70/30 [Concomitant]
     Indication: PRODUCT USED FOR UNKNOWN INDICATION
     Route: 065
  29. LIPITOR [Concomitant]
     Indication: PRODUCT USED FOR UNKNOWN INDICATION
     Route: 065
  30. PLAVIX [Concomitant]
     Indication: PRODUCT USED FOR UNKNOWN INDICATION
     Route: 065
  31. PREVACID [Concomitant]
     Indication: PRODUCT USED FOR UNKNOWN INDICATION
     Route: 065
  32. RENAGEL [Concomitant]
     Indication: PRODUCT USED FOR UNKNOWN INDICATION
     Route: 065
  33. TERAZOSIN HCL [Concomitant]
     Indication: PRODUCT USED FOR UNKNOWN INDICATION
     Route: 065
  34. NOVOLIN 70/30 [Concomitant]
     Route: 065
  35. POTASSIUM CHLORIDE [Concomitant]
     Indication: PRODUCT USED FOR UNKNOWN INDICATION
     Route: 033

REACTIONS (22)
  - ABDOMINAL PAIN [None]
  - ANAEMIA [None]
  - ASTHENIA [None]
  - CLOSTRIDIAL INFECTION [None]
  - DEATH [None]
  - DIARRHOEA [None]
  - DIZZINESS [None]
  - DYSKINESIA [None]
  - ENCEPHALOPATHY [None]
  - FALL [None]
  - HYPERHIDROSIS [None]
  - HYPERSENSITIVITY [None]
  - HYPOTENSION [None]
  - KLEBSIELLA TEST POSITIVE [None]
  - NAUSEA [None]
  - NERVE INJURY [None]
  - PERIPHERAL VASCULAR DISORDER [None]
  - PERITONITIS BACTERIAL [None]
  - PRURITUS [None]
  - RETCHING [None]
  - SEPSIS [None]
  - VOMITING [None]
